FAERS Safety Report 7773204-8 (Version None)
Quarter: 2011Q3

REPORT INFORMATION
  Report Type: 
  Country: None (occurrence: None)
  Receive Date: 20110921
  Receipt Date: 20110921
  Transmission Date: 20111222
  Serious: No
  Sender: FDA-Public Use
  Company Number: None

PATIENT
  Age: 66 Year
  Sex: Male
  Weight: 51.8 kg

DRUGS (1)
  1. AMIODARONE HCL [Suspect]
     Indication: ATRIAL FIBRILLATION
     Dosage: 900 MG EVERY DAY IV
     Route: 042
     Dates: start: 20110805, end: 20110811

REACTIONS (1)
  - ELECTROCARDIOGRAM QT PROLONGED [None]
